FAERS Safety Report 9664450 (Version 1)
Quarter: 2013Q4

REPORT INFORMATION
  Report Type: Spontaneous
  Country: FR (occurrence: FR)
  Receive Date: 20131101
  Receipt Date: 20131101
  Transmission Date: 20140711
  Serious: Yes (Hospitalization)
  Sender: FDA-Public Use
  Company Number: FR-TEVA-439276ISR

PATIENT
  Age: 17 Year
  Sex: Female

DRUGS (2)
  1. TRIMEBUTINE [Suspect]
     Indication: INTENTIONAL OVERDOSE
  2. LOPERAMIDE [Suspect]
     Indication: INTENTIONAL OVERDOSE

REACTIONS (3)
  - Intentional overdose [Recovered/Resolved]
  - Pancreatic enzymes increased [Recovered/Resolved]
  - Abdominal pain upper [Recovered/Resolved]
